FAERS Safety Report 10283802 (Version 2)
Quarter: 2014Q1

REPORT INFORMATION
  Report Type: Spontaneous
  Country: US (occurrence: None)
  Receive Date: 20120709
  Receipt Date: 20130724
  Transmission Date: 20141002
  Serious: Yes (Other)
  Sender: FDA-Public Use
  Company Number: PHHY2011US33482

PATIENT
  Age: 86 Year
  Sex: Female
  Weight: 56 kg

DRUGS (5)
  1. GLEEVEC [Suspect]
     Indication: CHROMOSOME ANALYSIS ABNORMAL
     Route: 048
  2. COZAAR (LOSARTAN POTASSIUM) (50 MILLIGRAM, TABLETS) (LOSARTAN POTASSIUM) [Concomitant]
  3. COLESTID (COLESTIPOL HYDROCHLORIDE) [Concomitant]
  4. LASIX (FUROSEMIDE) [Concomitant]
  5. ASA (ACETYLSALICYLIC ACID) [Concomitant]

REACTIONS (15)
  - Cystitis [None]
  - Coronary artery disease [None]
  - Myocardial infarction [None]
  - Atrial fibrillation [None]
  - Chromosome analysis abnormal [None]
  - Gene mutation identification test positive [None]
  - Blister [None]
  - Drug intolerance [None]
  - Diarrhoea [None]
  - Abdominal discomfort [None]
  - Vomiting [None]
  - Nausea [None]
  - Blood pressure diastolic decreased [None]
  - Therapeutic response decreased [None]
  - Dizziness [None]
